FAERS Safety Report 11626054 (Version 8)
Quarter: 2016Q1

REPORT INFORMATION
  Report Type: Report from Study
  Country: IL (occurrence: IL)
  Receive Date: 20151013
  Receipt Date: 20160211
  Transmission Date: 20160525
  Serious: Yes (Other)
  Sender: FDA-Public Use
  Company Number: IL-EISAI MEDICAL RESEARCH-EC-2015-011018

PATIENT
  Age: 22 Year
  Sex: Male
  Weight: 75 kg

DRUGS (7)
  1. ZONEGRAN [Concomitant]
     Active Substance: ZONISAMIDE
  2. FOLINIC ACID [Concomitant]
     Active Substance: LEUCOVORIN
  3. FYCOMPA [Suspect]
     Active Substance: PERAMPANEL
     Route: 048
     Dates: start: 20151004, end: 20151013
  4. NICOTINE TRANSDERMAL SYSTEM [Concomitant]
     Active Substance: NICOTINE
  5. FYCOMPA [Suspect]
     Active Substance: PERAMPANEL
     Indication: PARTIAL SEIZURES
     Route: 048
     Dates: start: 20150805, end: 20151001
  6. FYCOMPA [Suspect]
     Active Substance: PERAMPANEL
     Route: 048
     Dates: start: 20151002, end: 20151003
  7. DEPALEPT [Concomitant]
     Active Substance: VALPROIC ACID

REACTIONS (2)
  - Irritability [Recovered/Resolved]
  - Aggression [Recovered/Resolved]

NARRATIVE: CASE EVENT DATE: 20151003
